FAERS Safety Report 8209211-0 (Version None)
Quarter: 2012Q1

REPORT INFORMATION
  Report Type: 
  Country: None (occurrence: None)
  Receive Date: 20120314
  Receipt Date: 20120309
  Transmission Date: 20120608
  Serious: Yes (Death, Other)
  Sender: FDA-Public Use
  Company Number: PHHY2012CN021165

PATIENT
  Age: 61 Year
  Sex: Male

DRUGS (4)
  1. CETUXIMAB [Concomitant]
     Indication: ADENOCARCINOMA
     Route: 042
  2. CARBOPLATIN [Suspect]
     Indication: ADENOCARCINOMA
  3. GEMCITABINE [Suspect]
     Indication: ADENOCARCINOMA
  4. CETUXIMAB [Concomitant]

REACTIONS (4)
  - HEPATIC FUNCTION ABNORMAL [None]
  - DEATH [None]
  - NEUTROPENIA [None]
  - THROMBOCYTOPENIA [None]
